FAERS Safety Report 18408539 (Version 1)
Quarter: 2020Q4

REPORT INFORMATION
  Report Type: Spontaneous
  Country: US (occurrence: US)
  Receive Date: 20201020
  Receipt Date: 20201020
  Transmission Date: 20210114
  Serious: No
  Sender: FDA-Public Use
  Company Number: US-009507513-2010USA003280

PATIENT
  Age: 80 Year
  Sex: Male

DRUGS (5)
  1. KEYTRUDA [Suspect]
     Active Substance: PEMBROLIZUMAB
  2. XTANDI [Suspect]
     Active Substance: ENZALUTAMIDE
     Dosage: 160 MILLIGRAM (4 CAPSULES), ONCE DAILY
     Route: 048
     Dates: start: 20200101, end: 20200503
  3. XTANDI [Suspect]
     Active Substance: ENZALUTAMIDE
     Indication: PROSTATE CANCER METASTATIC
     Dosage: ONCE DAILY
     Route: 048
  4. XTANDI [Suspect]
     Active Substance: ENZALUTAMIDE
     Dosage: 120 MILLIGRAM (3 CAPSULES), ONCE DAILY
     Route: 048
     Dates: start: 20200504, end: 20200806
  5. XTANDI [Suspect]
     Active Substance: ENZALUTAMIDE
     Dosage: UNK
     Route: 048

REACTIONS (12)
  - Dysgeusia [Recovered/Resolved]
  - Movement disorder [Unknown]
  - Adverse event [Not Recovered/Not Resolved]
  - Abnormal loss of weight [Recovered/Resolved]
  - Food intolerance [Recovered/Resolved]
  - Hot flush [Not Recovered/Not Resolved]
  - Ageusia [Recovered/Resolved]
  - Decreased appetite [Recovered/Resolved]
  - Nervous system disorder [Unknown]
  - Abdominal discomfort [Unknown]
  - Fatigue [Unknown]
  - Communication disorder [Unknown]

NARRATIVE: CASE EVENT DATE: 2020
